FAERS Safety Report 18439908 (Version 1)
Quarter: 2020Q4

REPORT INFORMATION
  Report Type: Spontaneous
  Country: US (occurrence: US)
  Receive Date: 20201029
  Receipt Date: 20201029
  Transmission Date: 20210114
  Serious: No
  Sender: FDA-Public Use
  Company Number: US-LUPIN PHARMACEUTICALS INC.-2020-03172

PATIENT
  Sex: Female
  Weight: 55.34 kg

DRUGS (1)
  1. DULOXETINE. [Suspect]
     Active Substance: DULOXETINE
     Indication: DEPRESSION
     Dosage: 20 MILLIGRAM, QD
     Route: 065
     Dates: start: 201606, end: 201902

REACTIONS (1)
  - Adverse drug reaction [Unknown]
